FAERS Safety Report 16081007 (Version 5)
Quarter: 2024Q2

REPORT INFORMATION
  Report Type: Spontaneous
  Country: US (occurrence: US)
  Receive Date: 20190316
  Receipt Date: 20240425
  Transmission Date: 20240716
  Serious: Yes (Hospitalization, Other)
  Sender: FDA-Public Use
  Company Number: US-009507513-1903USA004660

PATIENT
  Age: 12 Year
  Sex: Male
  Weight: 42 kg

DRUGS (7)
  1. PRINIVIL [Suspect]
     Active Substance: LISINOPRIL
     Indication: Cardiovascular event prophylaxis
     Dosage: 5 MILLIGRAM, FREQUENCY: DAILY (QD)
     Route: 048
     Dates: start: 20180512, end: 20190219
  2. FORDADISTROGENE MOVAPARVOVEC [Suspect]
     Active Substance: FORDADISTROGENE MOVAPARVOVEC
     Indication: Duchenne muscular dystrophy
     Dosage: SINGLE DOSE, DOSE LEVEL 3E+14 VG/KG (ACTUAL DOSE OF 1.251E16VG, THE MOST RECENT DOSE BEFORE THE EVEN
     Route: 042
     Dates: start: 20190207, end: 20190207
  3. PREDNISONE [Concomitant]
     Active Substance: PREDNISONE
     Indication: Routine health maintenance
     Dosage: UNK
     Dates: start: 20190208
  4. CALCIUM CARBONATE [Concomitant]
     Active Substance: CALCIUM CARBONATE
     Indication: Routine health maintenance
     Dosage: UNK
  5. UBIDECARENONE [Concomitant]
     Active Substance: UBIDECARENONE
     Indication: Routine health maintenance
     Dosage: UNK
  6. ERGOCALCIFEROL [Concomitant]
     Active Substance: ERGOCALCIFEROL
     Indication: Routine health maintenance
     Dosage: UNK
  7. VITAMINS NOS [Concomitant]
     Active Substance: VITAMINS
     Indication: Routine health maintenance
     Dosage: UNK

REACTIONS (1)
  - Thrombotic microangiopathy [Recovered/Resolved]

NARRATIVE: CASE EVENT DATE: 20190217
